FAERS Safety Report 15566029 (Version 1)
Quarter: 2018Q4

REPORT INFORMATION
  Report Type: Spontaneous
  Country: US (occurrence: US)
  Receive Date: 20181025
  Receipt Date: 20181025
  Transmission Date: 20190205
  Serious: No
  Sender: FDA-Public Use
  Company Number: None

PATIENT
  Age: 61 Year
  Sex: Female
  Weight: 99.34 kg

DRUGS (1)
  1. SIMPONI ARIA [Suspect]
     Active Substance: GOLIMUMAB
     Indication: RHEUMATOID ARTHRITIS
     Dosage: INFUSE 198.6MG INTRAVENLOUSLY OVER 30 MINUTES AT WEEK 0 AND WEEK 4 AS DIRECTED
     Route: 042
     Dates: start: 201809

REACTIONS (2)
  - Dizziness [None]
  - Drug hypersensitivity [None]
